FAERS Safety Report 9757408 (Version 1)
Quarter: 2013Q4

REPORT INFORMATION
  Report Type: Spontaneous
  Country: GB (occurrence: GB)
  Receive Date: 20131214
  Receipt Date: 20131214
  Transmission Date: 20140711
  Serious: Yes (Disabling)
  Sender: FDA-Public Use
  Company Number: GB-THROMBOGENICS INC-JET-2013-284

PATIENT
  Age: 62 Year
  Sex: Male

DRUGS (1)
  1. JETREA [Suspect]
     Indication: RETINAL DETACHMENT
     Dosage: 0.125 MG, ONE TIME DOSE
     Route: 031
     Dates: start: 20130911, end: 20130911

REACTIONS (2)
  - Retinal detachment [Recovered/Resolved]
  - Off label use [Unknown]
